FAERS Safety Report 10077195 (Version 1)
Quarter: 2014Q2

REPORT INFORMATION
  Report Type: Spontaneous
  Country: JP (occurrence: JP)
  Receive Date: 20140414
  Receipt Date: 20140414
  Transmission Date: 20141212
  Serious: Yes (Other)
  Sender: FDA-Public Use
  Company Number: JP-BAXTER-2014BAX018088

PATIENT
  Age: 22 Year
  Sex: Male

DRUGS (3)
  1. FEIBA FOR INJECTION 500 [Suspect]
     Indication: HAEMARTHROSIS
     Dosage: 75 UNIT/KG
     Route: 065
  2. FEIBA FOR INJECTION 500 [Suspect]
     Dosage: 75 UNIT/KG
     Route: 065
  3. FEIBA FOR INJECTION 500 [Suspect]
     Dosage: 75 UNIT/KG
     Route: 065

REACTIONS (1)
  - Drug effect decreased [Recovered/Resolved]
